FAERS Safety Report 4573435-4 (Version None)
Quarter: 2005Q1

REPORT INFORMATION
  Report Type: 
  Country: None (occurrence: None)
  Receive Date: 20050208
  Receipt Date: 20040812
  Transmission Date: 20050727
  Serious: No
  Sender: FDA-Public Use
  Company Number: US-GLAXOSMITHKLINE-A0522098A

PATIENT
  Age: 48 Year
  Sex: Male
  Weight: 72.7 kg

DRUGS (1)
  1. PAXIL [Suspect]
     Indication: ANXIETY
     Dosage: 20MG IN THE MORNING
     Route: 048
     Dates: start: 20040831, end: 20041001

REACTIONS (7)
  - DIARRHOEA [None]
  - DIZZINESS [None]
  - DRUG INEFFECTIVE [None]
  - MUSCLE TIGHTNESS [None]
  - NERVOUSNESS [None]
  - PRURITUS [None]
  - TINNITUS [None]
